FAERS Safety Report 13849791 (Version 1)
Quarter: 2017Q3

REPORT INFORMATION
  Report Type: Spontaneous
  Country: BR (occurrence: BR)
  Receive Date: 20170809
  Receipt Date: 20170809
  Transmission Date: 20171127
  Serious: Yes (Life-Threatening, Other)
  Sender: FDA-Public Use
  Company Number: BR-ABBVIE-17K-020-2065831-00

PATIENT
  Age: 13 Year

DRUGS (1)
  1. HUMIRA [Suspect]
     Active Substance: ADALIMUMAB
     Indication: PRODUCT USED FOR UNKNOWN INDICATION
     Route: 058

REACTIONS (10)
  - Arthralgia [Unknown]
  - Suicide attempt [Unknown]
  - Injury [Unknown]
  - Diarrhoea [Recovering/Resolving]
  - Haemorrhage [Recovered/Resolved]
  - Abnormal behaviour [Unknown]
  - Colitis [Unknown]
  - Tremor [Unknown]
  - Aphthous ulcer [Unknown]
  - Haematochezia [Recovered/Resolved]
